FAERS Safety Report 11234178 (Version 2)
Quarter: 2015Q4

REPORT INFORMATION
  Report Type: Spontaneous
  Country: US (occurrence: US)
  Receive Date: 20150702
  Receipt Date: 20151014
  Transmission Date: 20160304
  Serious: No
  Sender: FDA-Public Use
  Company Number: US-PFIZER INC-2015219082

PATIENT
  Age: 81 Year
  Sex: Female
  Weight: 66 kg

DRUGS (3)
  1. FLUDROCORTISONE [Concomitant]
     Active Substance: FLUDROCORTISONE
     Dosage: UNK
  2. CORTEF [Suspect]
     Active Substance: HYDROCORTISONE
     Dosage: DAILY, 30-35 MG
     Dates: start: 2015, end: 2015
  3. CORTEF [Suspect]
     Active Substance: HYDROCORTISONE
     Indication: ADDISON^S DISEASE
     Dosage: 30 MG, 1X/DAY (20MG/ONCE DAY+ 10MG/ONCE A DAY)

REACTIONS (1)
  - Hyperchlorhydria [Recovered/Resolved]
